FAERS Safety Report 20750994 (Version 2)
Quarter: 2022Q2

REPORT INFORMATION
  Report Type: Spontaneous
  Country: US (occurrence: None)
  Receive Date: 20220426
  Receipt Date: 20220428
  Transmission Date: 20220721
  Serious: No
  Sender: FDA-Public Use
  Company Number: US-ROCHE-3078707

PATIENT
  Age: 60 Year
  Sex: Female
  Weight: 88.984 kg

DRUGS (6)
  1. OCREVUS [Suspect]
     Active Substance: OCRELIZUMAB
     Indication: Relapsing-remitting multiple sclerosis
     Dosage: NO
     Route: 042
     Dates: start: 20220315
  2. OCREVUS [Suspect]
     Active Substance: OCRELIZUMAB
     Dosage: NO
     Route: 042
     Dates: start: 20220329
  3. OCREVUS [Suspect]
     Active Substance: OCRELIZUMAB
     Dosage: YES
     Route: 042
  4. LAMICTAL [Concomitant]
     Active Substance: LAMOTRIGINE
     Indication: Depression
     Route: 048
  5. ZOLOFT [Concomitant]
     Active Substance: SERTRALINE HYDROCHLORIDE
     Indication: Depression
     Route: 048
  6. CLONAZEPAM [Concomitant]
     Active Substance: CLONAZEPAM
     Route: 048

REACTIONS (5)
  - Nasal congestion [Not Recovered/Not Resolved]
  - Cough [Not Recovered/Not Resolved]
  - Restless legs syndrome [Recovered/Resolved]
  - Urinary tract infection [Not Recovered/Not Resolved]
  - Candida infection [Recovered/Resolved]

NARRATIVE: CASE EVENT DATE: 20220317
